FAERS Safety Report 14879884 (Version 1)
Quarter: 2018Q2

REPORT INFORMATION
  Report Type: Spontaneous
  Country: US (occurrence: US)
  Receive Date: 20180425
  Receipt Date: 20180425
  Transmission Date: 20180711
  Serious: Yes (Hospitalization)
  Sender: FDA-Public Use
  Company Number: None

PATIENT
  Sex: Female

DRUGS (10)
  1. IBUPROFEN. [Concomitant]
     Active Substance: IBUPROFEN
  2. NITROGLYCER [Concomitant]
  3. VITAMIN D [Concomitant]
     Active Substance: CHOLECALCIFEROL
  4. ETOPOSIDE. [Suspect]
     Active Substance: ETOPOSIDE
     Indication: CARCINOID TUMOUR
     Dosage: ?          OTHER FREQUENCY:50MG QD 14 DAYS;?
     Route: 048
     Dates: start: 20180102
  5. METOCLOPRAM [Concomitant]
     Active Substance: METOCLOPRAMIDE
  6. PEPCID [Concomitant]
     Active Substance: FAMOTIDINE
  7. ASPRIN [Concomitant]
     Active Substance: ASPIRIN
  8. METROPROL [Concomitant]
  9. HYDROCHLOROT [Concomitant]
     Active Substance: HYDROCHLOROTHIAZIDE
  10. LEVOTHYROXIN [Concomitant]
     Active Substance: LEVOTHYROXINE

REACTIONS (3)
  - Abdominal pain upper [None]
  - Constipation [None]
  - Cholelithiasis [None]
